FAERS Safety Report 7847121-9 (Version None)
Quarter: 2011Q4

REPORT INFORMATION
  Report Type: 
  Country: None (occurrence: None)
  Receive Date: 20111025
  Receipt Date: 20110509
  Transmission Date: 20120403
  Serious: No
  Sender: FDA-Public Use
  Company Number: US-ALLERGAN-1106372US

PATIENT
  Age: 11 Year
  Sex: Female

DRUGS (1)
  1. BLEPHAMIDE [Suspect]
     Indication: SUPERFICIAL INJURY OF EYE
     Dosage: 1 DROP INSTILLED FOUR TIMES DAILY TO THE RIGHT EYE
     Route: 047
     Dates: start: 20110503

REACTIONS (1)
  - EYE IRRITATION [None]
